FAERS Safety Report 14984243 (Version 2)
Quarter: 2018Q4

REPORT INFORMATION
  Report Type: Report from Study
  Country: KR (occurrence: KR)
  Receive Date: 20180607
  Receipt Date: 20181016
  Transmission Date: 20190204
  Serious: Yes (Death, Hospitalization, Other)
  Sender: FDA-Public Use
  Company Number: KR-JAZZ-2017-KR-016173

PATIENT
  Age: 27 Year
  Sex: Male
  Weight: 72.4 kg

DRUGS (4)
  1. CEFTAZIDIM [Concomitant]
     Active Substance: CEFTAZIDIME
     Dosage: 2000 MG, QD
     Route: 042
     Dates: start: 20171129, end: 20171201
  2. CEFTAZIDIM [Concomitant]
     Active Substance: CEFTAZIDIME
     Indication: INFECTION PROPHYLAXIS
     Dosage: 2000 MG, BID
     Route: 042
     Dates: start: 20171119, end: 20171128
  3. DEFITELIO [Suspect]
     Active Substance: DEFIBROTIDE SODIUM
     Indication: VENOOCCLUSIVE DISEASE
     Dosage: 6.25 MG/KG, QD
     Route: 042
     Dates: start: 20171120, end: 20171201
  4. FLUCONAZOLE. [Concomitant]
     Active Substance: FLUCONAZOLE
     Indication: INFECTION PROPHYLAXIS
     Dosage: 100 MG, QD
     Route: 048
     Dates: start: 20171121, end: 20171127

REACTIONS (2)
  - Acute lymphocytic leukaemia [Fatal]
  - Condition aggravated [Fatal]

NARRATIVE: CASE EVENT DATE: 20171201
